FAERS Safety Report 9439350 (Version 3)
Quarter: 2014Q1

REPORT INFORMATION
  Report Type: Spontaneous
  Country: US (occurrence: US)
  Receive Date: 20130805
  Receipt Date: 20140303
  Transmission Date: 20141002
  Serious: Yes (Other)
  Sender: FDA-Public Use
  Company Number: US-AMGEN-USASP2013053437

PATIENT
  Age: 62 Year
  Sex: Female
  Weight: 52.15 kg

DRUGS (8)
  1. ENBREL [Suspect]
     Indication: RHEUMATOID ARTHRITIS
     Dosage: 50 MG, QWK
     Route: 058
     Dates: start: 20120928
  2. MELOXICAM [Concomitant]
     Dosage: 7.5 MG, UNK
     Route: 048
  3. PRAVASTATIN [Concomitant]
     Dosage: 10 MG, UNK
     Route: 048
  4. SYMBICORT [Concomitant]
     Dosage: 160-4.5, UNK
  5. ACETAMINOPHEN [Concomitant]
     Dosage: 500 MG, UNK
     Route: 048
  6. LEVOTHYROXIN [Concomitant]
     Dosage: 137 MUG, UNK
     Route: 048
  7. OSCAL 500 + D [Concomitant]
     Dosage: UNK
     Route: 048
  8. VITAMIN D                          /00107901/ [Concomitant]
     Dosage: 1000 UNIT, UNK
     Route: 048

REACTIONS (1)
  - Pneumonia [Recovered/Resolved]
